FAERS Safety Report 9237464 (Version 3)
Quarter: 2013Q2

REPORT INFORMATION
  Report Type: Spontaneous
  Country: US (occurrence: US)
  Receive Date: 20130417
  Receipt Date: 20130522
  Transmission Date: 20140414
  Serious: No
  Sender: FDA-Public Use
  Company Number: US-PFIZER INC-2013114214

PATIENT
  Sex: Female

DRUGS (3)
  1. XALATAN [Suspect]
     Dosage: UNK
  2. PROCARDIA [Suspect]
     Dosage: UNK
  3. PROCARDIA XL [Suspect]
     Dosage: UNK

REACTIONS (3)
  - Ear infection [Not Recovered/Not Resolved]
  - Hearing impaired [Unknown]
  - Drug prescribing error [Unknown]
